FAERS Safety Report 9505900 (Version 1)
Quarter: 2013Q1

REPORT INFORMATION
  Report Type: Spontaneous
  Country: US (occurrence: None)
  Receive Date: 20130219
  Receipt Date: 20130219
  Transmission Date: 20140127
  Serious: Yes (Disabling, Other)
  Sender: FDA-Public Use
  Company Number: 074942

PATIENT
  Sex: Male

DRUGS (2)
  1. LACOSAMIDE [Suspect]
     Indication: CONVULSION
  2. KEPPRA [Suspect]
     Indication: CONVULSION

REACTIONS (5)
  - Epilepsy [None]
  - Affective disorder [None]
  - Anxiety [None]
  - Depression [None]
  - Impaired work ability [None]
